FAERS Safety Report 9345002 (Version 1)
Quarter: 2013Q2

REPORT INFORMATION
  Report Type: Report from Study
  Country: GR (occurrence: GR)
  Receive Date: 20130612
  Receipt Date: 20130612
  Transmission Date: 20140414
  Serious: Yes (Death)
  Sender: FDA-Public Use
  Company Number: GR-PFIZER INC-2013173673

PATIENT
  Sex: 0

DRUGS (2)
  1. TEMSIROLIMUS [Suspect]
     Indication: HEPATOCELLULAR CARCINOMA
     Dosage: 25 MG, CYCLIC (EVERY 14 DAYS)
  2. BEVACIZUMAB [Suspect]
     Indication: HEPATOCELLULAR CARCINOMA
     Dosage: 10 MG/KG, CYCLIC (EVERY 14 DAYS)

REACTIONS (1)
  - Cardiac arrest [Fatal]
